FAERS Safety Report 7700862-6 (Version None)
Quarter: 2011Q3

REPORT INFORMATION
  Report Type: 
  Country: None (occurrence: None)
  Receive Date: 20110822
  Receipt Date: 20110809
  Transmission Date: 20111222
  Serious: Yes (Other)
  Sender: FDA-Public Use
  Company Number: PHHY2011BR71881

PATIENT
  Sex: Female

DRUGS (6)
  1. POTTASIUM LOSARTAN [Concomitant]
     Indication: HYPERTENSION
     Dosage: 1 DF, QD
  2. ZARGUS [Concomitant]
     Indication: DEPRESSED MOOD
     Dosage: 1 DF, QD
     Route: 048
     Dates: start: 20110401
  3. FERROUS SULFATE TAB [Concomitant]
     Indication: ANAEMIA
     Dosage: UNK UKN, UNK
     Route: 048
  4. ASPIRIN [Concomitant]
     Indication: BLOOD VISCOSITY INCREASED
     Dosage: UNK UKN, UNK
  5. EXELON [Suspect]
     Indication: DEMENTIA ALZHEIMER'S TYPE
     Dosage: 9.5 MG, QD
     Route: 062
  6. CLONAZEPAM [Concomitant]
     Indication: SLEEP DISORDER
     Dosage: 1 OR A 1/2 TABLET AT NIGHT
     Route: 048

REACTIONS (3)
  - MEMORY IMPAIRMENT [None]
  - ABASIA [None]
  - FALL [None]
